FAERS Safety Report 25461520 (Version 2)
Quarter: 2025Q3

REPORT INFORMATION
  Report Type: Report from Study
  Country: US (occurrence: US)
  Receive Date: 20250620
  Receipt Date: 20250716
  Transmission Date: 20251020
  Serious: No
  Sender: AGIOS PHARMACEUTICALS
  Company Number: US-AGIOS-2506US04302

PATIENT
  Sex: Female

DRUGS (1)
  1. MITAPIVAT [Suspect]
     Active Substance: MITAPIVAT
     Indication: Autoimmune haemolytic anaemia
     Route: 048
     Dates: start: 20250215

REACTIONS (3)
  - Asthenia [Unknown]
  - Haemoglobin decreased [Unknown]
  - Off label use [Unknown]
